FAERS Safety Report 10752260 (Version 2)
Quarter: 2015Q1

REPORT INFORMATION
  Report Type: Spontaneous
  Country: US (occurrence: US)
  Receive Date: 20150130
  Receipt Date: 20150211
  Transmission Date: 20150721
  Serious: No
  Sender: FDA-Public Use
  Company Number: US-009507513-1501USA011194

PATIENT
  Age: 78 Year
  Sex: Female
  Weight: 74.83 kg

DRUGS (2)
  1. OXYTROL FOR WOMEN [Suspect]
     Active Substance: OXYBUTYNIN
     Indication: INCONTINENCE
     Dosage: 1 DF, UNKNOWN
     Route: 062
     Dates: start: 20150124, end: 20150124
  2. OXYCODONE [Concomitant]
     Active Substance: OXYCODONE
     Indication: ARTHRITIS
     Dosage: UNK, UNKNOWN

REACTIONS (3)
  - Application site reaction [Recovered/Resolved]
  - Application site burn [Recovered/Resolved]
  - Application site pain [Recovered/Resolved]

NARRATIVE: CASE EVENT DATE: 20150124
